FAERS Safety Report 15233223 (Version 1)
Quarter: 2018Q3

REPORT INFORMATION
  Report Type: Spontaneous
  Country: US (occurrence: US)
  Receive Date: 20180709
  Receipt Date: 20180709
  Transmission Date: 20181010
  Serious: No
  Sender: FDA-Public Use
  Company Number: None

PATIENT
  Age: 44 Year
  Sex: Male

DRUGS (1)
  1. STELARA [Suspect]
     Active Substance: USTEKINUMAB
     Dates: start: 20180101, end: 20180701

REACTIONS (3)
  - Insurance issue [None]
  - Drug dose omission [None]
  - Psoriasis [None]

NARRATIVE: CASE EVENT DATE: 20180709
